FAERS Safety Report 8117204-7 (Version None)
Quarter: 2012Q1

REPORT INFORMATION
  Report Type: 
  Country: None (occurrence: None)
  Receive Date: 20120206
  Receipt Date: 20120202
  Transmission Date: 20120608
  Serious: Yes (Hospitalization)
  Sender: FDA-Public Use
  Company Number: US-VERTEX PHARMACEUTICALS INC.-AE-2012-001747

PATIENT
  Sex: Female
  Weight: 49.94 kg

DRUGS (5)
  1. RIBAVIRIN [Concomitant]
     Route: 048
     Dates: start: 20111110, end: 20111227
  2. PEGASYS [Concomitant]
     Route: 058
     Dates: start: 20111110, end: 20111227
  3. INCIVEK [Suspect]
     Indication: HEPATITIS C
     Route: 048
     Dates: start: 20111006, end: 20111227
  4. RIBAVIRIN [Concomitant]
     Indication: HEPATITIS C
     Route: 048
     Dates: start: 20111006, end: 20111110
  5. PEGASYS [Concomitant]
     Indication: HEPATITIS C
     Route: 058
     Dates: start: 20111006, end: 20111110

REACTIONS (6)
  - BLISTER [None]
  - PYREXIA [None]
  - OEDEMA PERIPHERAL [None]
  - HYPOTENSION [None]
  - SWELLING FACE [None]
  - RASH PRURITIC [None]
